FAERS Safety Report 23947794 (Version 1)
Quarter: 2024Q2

REPORT INFORMATION
  Report Type: Report from Study
  Country: US (occurrence: US)
  Receive Date: 20240606
  Receipt Date: 20240606
  Transmission Date: 20240716
  Serious: Yes (Other)
  Sender: FDA-Public Use
  Company Number: US-APELLIS-APL-2023-002295

PATIENT

DRUGS (2)
  1. PEGCETACOPLAN [Suspect]
     Active Substance: PEGCETACOPLAN
     Indication: Dry age-related macular degeneration
     Dosage: 15 MILLILITER, EVERY 28 DAYS
     Route: 031
     Dates: start: 20230301
  2. PEGCETACOPLAN [Suspect]
     Active Substance: PEGCETACOPLAN
     Dosage: 15 MG, EVERY 28 DAYS
     Route: 031
     Dates: start: 20230301

REACTIONS (6)
  - Discharge [Unknown]
  - Ill-defined disorder [Unknown]
  - Ocular hyperaemia [Unknown]
  - Ocular hyperaemia [Recovered/Resolved]
  - Intra-ocular injection complication [Recovered/Resolved]
  - Vertigo [Not Recovered/Not Resolved]

NARRATIVE: CASE EVENT DATE: 20230301
